FAERS Safety Report 5390266-6 (Version None)
Quarter: 2007Q3

REPORT INFORMATION
  Report Type: 
  Country: None (occurrence: None)
  Receive Date: 20070716
  Receipt Date: 20060905
  Transmission Date: 20080115
  Serious: Yes (Hospitalization)
  Sender: FDA-Public Use
  Company Number: MPS1-10578

PATIENT
  Age: 15 Month
  Sex: Female

DRUGS (1)
  1. ALDURAZYME [Suspect]
     Indication: MUCOPOLYSACCHARIDOSIS I
     Dosage: 100  MG/KG QWK IV
     Route: 042

REACTIONS (1)
  - BLOOD STEM CELL TRANSPLANT FAILURE [None]
